FAERS Safety Report 18257355 (Version 1)
Quarter: 2020Q3

REPORT INFORMATION
  Report Type: Spontaneous
  Country: US (occurrence: US)
  Receive Date: 20200911
  Receipt Date: 20200911
  Transmission Date: 20201103
  Serious: No
  Sender: FDA-Public Use
  Company Number: US-SA-2020SA247166

PATIENT

DRUGS (1)
  1. DUPIXENT [Suspect]
     Active Substance: DUPILUMAB
     Indication: DERMATITIS ATOPIC
     Dosage: 300 MG, QOW
     Dates: start: 20200207

REACTIONS (6)
  - Rash pruritic [Unknown]
  - Erythema [Unknown]
  - Expired product administered [Unknown]
  - Dermatitis contact [Unknown]
  - Condition aggravated [Unknown]
  - Rash macular [Unknown]

NARRATIVE: CASE EVENT DATE: 20200207
